FAERS Safety Report 5079003-2 (Version None)
Quarter: 2006Q3

REPORT INFORMATION
  Report Type: 
  Country: None (occurrence: None)
  Receive Date: 20060814
  Receipt Date: 20060731
  Transmission Date: 20061208
  Serious: Yes (Other)
  Sender: FDA-Public Use
  Company Number: PHBS2006UA11543

PATIENT
  Age: 56 Year
  Sex: Male

DRUGS (1)
  1. SANDOSTATIN [Suspect]
     Indication: OEDEMATOUS PANCREATITIS
     Dosage: 0.1 MG/ML, TID
     Route: 058
     Dates: start: 20060724

REACTIONS (1)
  - ACHOLIA [None]
